FAERS Safety Report 9034266 (Version 1)
Quarter: 2013Q1

REPORT INFORMATION
  Report Type: Spontaneous
  Country: US (occurrence: US)
  Receive Date: 20130128
  Receipt Date: 20130128
  Transmission Date: 20140127
  Serious: Yes (Death, Hospitalization)
  Sender: FDA-Public Use
  Company Number: US-AMGEN-KDL136715

PATIENT
  Age: 66 Year
  Sex: Female

DRUGS (2)
  1. ENBREL [Suspect]
     Indication: RHEUMATOID ARTHRITIS
     Dosage: 25 MG, 2 TIMES/WK
     Route: 058
     Dates: start: 20020522, end: 2003
  2. ENBREL [Suspect]
     Dosage: 25 MG, QWK
     Route: 058
     Dates: start: 2003, end: 20040122

REACTIONS (4)
  - Cardiac disorder [Fatal]
  - Condition aggravated [Fatal]
  - Staphylococcal infection [Unknown]
  - Localised infection [Unknown]
